FAERS Safety Report 4844211-X (Version None)
Quarter: 2005Q4

REPORT INFORMATION
  Report Type: 
  Country: None (occurrence: None)
  Receive Date: 20051202
  Receipt Date: 20051130
  Transmission Date: 20060501
  Serious: Yes (Life-Threatening, Hospitalization, Other)
  Sender: FDA-Public Use
  Company Number: US-GLAXOSMITHKLINE-A0584119A

PATIENT
  Age: 43 Year
  Sex: Female

DRUGS (3)
  1. THIOGUANINE [Suspect]
     Indication: PSORIASIS
     Dosage: 240MG TWO TIMES PER WEEK
     Route: 048
  2. BIRTH CONTROL [Concomitant]
  3. SYNTHROID [Concomitant]

REACTIONS (2)
  - DEEP VEIN THROMBOSIS [None]
  - PULMONARY EMBOLISM [None]
